FAERS Safety Report 7746290-9 (Version None)
Quarter: 2011Q3

REPORT INFORMATION
  Report Type: 
  Country: None (occurrence: None)
  Receive Date: 20110913
  Receipt Date: 20110907
  Transmission Date: 20111222
  Serious: Yes (Other)
  Sender: FDA-Public Use
  Company Number: US-ROCHE-797544

PATIENT
  Age: 73 Year
  Sex: Female

DRUGS (1)
  1. BONIVA [Suspect]
     Dosage: FOR 2 YEARS
     Route: 065
     Dates: start: 20060101, end: 20100401

REACTIONS (8)
  - FIBROMYALGIA [None]
  - JAW CYST [None]
  - PAIN IN JAW [None]
  - ENDODONTIC PROCEDURE [None]
  - TOOTH EXTRACTION [None]
  - LOWER LIMB FRACTURE [None]
  - TOOTHACHE [None]
  - PAIN [None]
